FAERS Safety Report 9444065 (Version 1)
Quarter: 2013Q3

REPORT INFORMATION
  Report Type: Spontaneous
  Country: US (occurrence: None)
  Receive Date: 20130806
  Receipt Date: 20130806
  Transmission Date: 20140515
  Serious: No
  Sender: FDA-Public Use
  Company Number: None

PATIENT
  Age: 79 Year
  Sex: Female

DRUGS (1)
  1. SENSIPAR [Suspect]
     Indication: ILL-DEFINED DISORDER
     Dosage: 30MG DAILY PO
     Route: 048
     Dates: start: 20130515, end: 20130515

REACTIONS (4)
  - Oropharyngeal pain [None]
  - Oesophageal pain [None]
  - Abdominal pain upper [None]
  - Gastrointestinal pain [None]
